FAERS Safety Report 4914828-2 (Version None)
Quarter: 2006Q1

REPORT INFORMATION
  Report Type: 
  Country: None (occurrence: None)
  Receive Date: 20060113
  Receipt Date: 20051025
  Transmission Date: 20060701
  Serious: No
  Sender: FDA-Public Use
  Company Number: 2005SP003658

PATIENT
  Age: 81 Year
  Sex: Female
  Weight: 77.1115 kg

DRUGS (6)
  1. LUNESTA [Suspect]
     Indication: INITIAL INSOMNIA
     Dosage: 2 MG;HS;ORAL ; 3 MG;HS;ORAL
     Route: 048
     Dates: start: 20051001, end: 20051001
  2. LUNESTA [Suspect]
     Indication: INITIAL INSOMNIA
     Dosage: 2 MG;HS;ORAL ; 3 MG;HS;ORAL
     Route: 048
     Dates: start: 20051001, end: 20051001
  3. LOTREL [Concomitant]
  4. WELLBUTRIN [Concomitant]
  5. MERCAPTOPURINE [Concomitant]
  6. SERAX [Concomitant]

REACTIONS (2)
  - DRUG INEFFECTIVE [None]
  - INITIAL INSOMNIA [None]
